FAERS Safety Report 5520383-9 (Version None)
Quarter: 2007Q4

REPORT INFORMATION
  Report Type: 
  Country: None (occurrence: None)
  Receive Date: 20071116
  Receipt Date: 20071116
  Transmission Date: 20080405
  Serious: No
  Sender: FDA-Public Use
  Company Number: None

PATIENT
  Sex: Male

DRUGS (2)
  1. PERPHENAZINE [Suspect]
     Indication: SCHIZOPHRENIA, PARANOID TYPE
     Dosage: 10MG/DAILY DIVIDED DOSES PO
     Route: 048
     Dates: start: 20071017, end: 20071025
  2. PAROXETINE [Suspect]
     Indication: MAJOR DEPRESSION
     Dosage: 20MG DAY HS PO  MONTHS PRIOR TO EVENT
     Route: 048

REACTIONS (1)
  - PRIAPISM [None]
